FAERS Safety Report 12081216 (Version 1)
Quarter: 2016Q1

REPORT INFORMATION
  Report Type: Spontaneous
  Country: US (occurrence: US)
  Receive Date: 20160216
  Receipt Date: 20160216
  Transmission Date: 20160526
  Serious: No
  Sender: FDA-Public Use
  Company Number: US-ENDO PHARMACEUTICALS INC.-2015-000490

PATIENT
  Age: 35 Year
  Sex: Female

DRUGS (1)
  1. OXYCODONE HCL 30MG [Suspect]
     Active Substance: OXYCODONE HYDROCHLORIDE
     Indication: PRODUCT USED FOR UNKNOWN INDICATION
     Route: 065
     Dates: start: 2009

REACTIONS (4)
  - Product size issue [Unknown]
  - Malaise [Unknown]
  - Product colour issue [Unknown]
  - Dizziness [Unknown]

NARRATIVE: CASE EVENT DATE: 2015
